FAERS Safety Report 14518410 (Version 2)
Quarter: 2018Q1

REPORT INFORMATION
  Report Type: Spontaneous
  Country: FR (occurrence: FR)
  Receive Date: 20180212
  Receipt Date: 20180320
  Transmission Date: 20180509
  Serious: Yes (Other)
  Sender: FDA-Public Use
  Company Number: FR-TEVA-2018-FR-855007

PATIENT
  Age: 86 Year
  Sex: Female
  Weight: 48 kg

DRUGS (8)
  1. TRAMADOL (CHLORHYDRATE DE) [Concomitant]
     Active Substance: TRAMADOL HYDROCHLORIDE
     Dosage: 1 ? 4/J
     Route: 048
     Dates: start: 20161208
  2. KARDEGIC 75 MG,POWDER FOR ORAL SOLUTION IN SACHET-DOSE [Concomitant]
     Route: 048
     Dates: start: 20160728
  3. INDAPAMIDE. [Concomitant]
     Active Substance: INDAPAMIDE
     Route: 048
     Dates: start: 20171107
  4. CALCIDOSE VITAMINE D, POUDRE ORALE EN SACHET-DOSE [Concomitant]
     Active Substance: CALCIUM\CHOLECALCIFEROL
     Route: 048
     Dates: start: 20140322
  5. PERINDOPRIL [Concomitant]
     Active Substance: PERINDOPRIL
     Route: 048
     Dates: start: 20171107
  6. CETIRIZINE (DICHLORHYDRATE DE) [Suspect]
     Active Substance: CETIRIZINE HYDROCHLORIDE
     Route: 048
     Dates: start: 20141124, end: 20171116
  7. BISOPROLOL (HEMIFUMARATE DE) [Concomitant]
     Active Substance: BISOPROLOL FUMARATE
     Route: 048
     Dates: start: 20161129
  8. OXYNORM 20 MG, [Concomitant]
     Route: 048
     Dates: start: 20160808

REACTIONS (1)
  - Protrusion tongue [Recovering/Resolving]

NARRATIVE: CASE EVENT DATE: 20171115
